FAERS Safety Report 20752576 (Version 1)
Quarter: 2022Q2

REPORT INFORMATION
  Report Type: Spontaneous
  Country: US (occurrence: None)
  Receive Date: 20220426
  Receipt Date: 20220426
  Transmission Date: 20220721
  Serious: No
  Sender: FDA-Public Use
  Company Number: US-ROCHE-2846907

PATIENT
  Sex: Male

DRUGS (7)
  1. ESBRIET [Suspect]
     Active Substance: PIRFENIDONE
     Indication: Interstitial lung disease
     Route: 048
     Dates: start: 20180717
  2. MAGNESIUM [Concomitant]
     Active Substance: MAGNESIUM
  3. MELATONIN [Concomitant]
     Active Substance: MELATONIN
  4. OMEPRAZOLE [Concomitant]
     Active Substance: OMEPRAZOLE
  5. POTASSIUM [Concomitant]
     Active Substance: POTASSIUM
  6. SIMVASTATIN [Concomitant]
     Active Substance: SIMVASTATIN
  7. ASPIRIN [Concomitant]
     Active Substance: ASPIRIN

REACTIONS (1)
  - Illness [Recovered/Resolved]
